FAERS Safety Report 4310132-4 (Version None)
Quarter: 2004Q1

REPORT INFORMATION
  Report Type: 
  Country: None (occurrence: None)
  Receive Date: 20040301
  Receipt Date: 20031121
  Transmission Date: 20041129
  Serious: No
  Sender: FDA-Public Use
  Company Number: WAES 0310USA00254

PATIENT
  Age: 74 Year
  Sex: Female
  Weight: 41.7309 kg

DRUGS (5)
  1. ZETIA [Suspect]
     Indication: BLOOD CHOLESTEROL INCREASED
     Dosage: 10 MG/DAILY/PO
     Route: 048
     Dates: start: 20030819, end: 20030819
  2. ACCOLATE [Concomitant]
  3. ATROVENT [Concomitant]
  4. AZMACORT [Concomitant]
  5. ALBUTEROL [Concomitant]

REACTIONS (3)
  - FEELING HOT [None]
  - NERVOUSNESS [None]
  - TREMOR [None]
